FAERS Safety Report 6234581-2 (Version None)
Quarter: 2009Q2

REPORT INFORMATION
  Report Type: 
  Country: None (occurrence: None)
  Receive Date: 20090618
  Receipt Date: 20090611
  Transmission Date: 20091009
  Serious: Yes (Death)
  Sender: FDA-Public Use
  Company Number: US-AVENTIS-200914151US

PATIENT
  Sex: Male
  Weight: 124.74 kg

DRUGS (11)
  1. LOVENOX [Suspect]
     Dates: start: 20090507, end: 20090509
  2. LOVENOX [Suspect]
     Dates: start: 20090507, end: 20090509
  3. ATENOLOL [Concomitant]
     Indication: HYPERTENSION
  4. ZETIA [Concomitant]
  5. TRICOR [Concomitant]
  6. HYDROCHLOROTHIAZIDE [Concomitant]
     Indication: HYPERTENSION
  7. LOSARTAN POTASSIUM [Concomitant]
     Indication: HYPERTENSION
  8. NIASPAN [Concomitant]
  9. ZOCOR [Concomitant]
  10. ORAL ANTIDIABETICS [Concomitant]
  11. AMBIEN [Concomitant]

REACTIONS (2)
  - CARDIAC ARREST [None]
  - CHOKING [None]
